FAERS Safety Report 16345462 (Version 2)
Quarter: 2019Q2

REPORT INFORMATION
  Report Type: Report from Study
  Country: ES (occurrence: ES)
  Receive Date: 20190523
  Receipt Date: 20190531
  Transmission Date: 20190711
  Serious: Yes (Hospitalization, Other)
  Sender: FDA-Public Use
  Company Number: ES-BRISTOL-MYERS SQUIBB COMPANY-BMS-2019-046240

PATIENT
  Age: 68 Year
  Sex: Male

DRUGS (4)
  1. NIVOLUMAB [Suspect]
     Active Substance: NIVOLUMAB
     Indication: HEPATOCELLULAR CARCINOMA
     Dosage: 240 MILLIGRAM, Q2WK
     Route: 042
     Dates: start: 20190108
  2. ESPIRONOLACTONA [Concomitant]
     Active Substance: SPIRONOLACTONE
     Indication: ASCITES
     Dosage: 100 MILLIGRAM, QD
     Route: 048
     Dates: start: 20190430
  3. PREDNISONA [Concomitant]
     Active Substance: PREDNISONE
     Indication: BLOOD BILIRUBIN INCREASED
     Dosage: 20 MILLIGRAM, QD
     Route: 048
     Dates: start: 20190505
  4. FUROSEMIDA [FUROSEMIDE] [Concomitant]
     Indication: ASCITES
     Dosage: 40 MILLIGRAM, QD
     Route: 048
     Dates: start: 20190430

REACTIONS (5)
  - Peripheral ischaemia [Recovered/Resolved with Sequelae]
  - Renal failure [Recovered/Resolved]
  - Postoperative wound infection [Recovered/Resolved with Sequelae]
  - Sepsis [Recovered/Resolved]
  - Thrombocytopenia [Unknown]

NARRATIVE: CASE EVENT DATE: 20190506
